FAERS Safety Report 8275434 (Version 4)
Quarter: 2012Q4

REPORT INFORMATION
  Report Type: 
  Country: HR (occurrence: HR)
  Receive Date: 20111205
  Receipt Date: 20120913
  Transmission Date: 20130627
  Serious: Yes (Death)
  Sender: FDA-Public Use
  Company Number: HR-ABBOTT-11P-216-0879953-00

PATIENT
  Age: 73 Year
  Sex: Male
  Weight: 86 kg

DRUGS (7)
  1. ZEMPLAR [Suspect]
     Indication: HYPERPARATHYROIDISM SECONDARY
     Dosage: 5 mcg/1ml ampoule; 2 ampoule/week
     Route: 042
     Dates: start: 20110112, end: 20111118
  2. TAGREN [Concomitant]
     Indication: PRODUCT USED FOR UNKNOWN INDICATION
     Route: 048
  3. LANSOPRAZOLE [Concomitant]
     Indication: PRODUCT USED FOR UNKNOWN INDICATION
     Route: 048
     Dates: start: 201101, end: 201111
  4. CALCIUM CARBONATE [Concomitant]
     Indication: PRODUCT USED FOR UNKNOWN INDICATION
     Dosage: 2g daily, 1g tbl/; 2 tbl per day
     Route: 048
  5. FOLACIN [Concomitant]
     Indication: PRODUCT USED FOR UNKNOWN INDICATION
     Route: 048
     Dates: start: 200910, end: 20111121
  6. ACTRAPID [Concomitant]
     Indication: TYPE 2 DIABETES MELLITUS
     Route: 058
  7. VENOFER [Concomitant]
     Indication: ANAEMIA
     Dosage: 100mg/5ml ampoule, 1 amp per week
     Route: 042
     Dates: start: 20111005, end: 20111118

REACTIONS (3)
  - Acute myocardial infarction [Fatal]
  - Cardiogenic shock [Fatal]
  - Ischaemic cardiomyopathy [Fatal]
